FAERS Safety Report 8507245 (Version 3)
Quarter: 2012Q4

REPORT INFORMATION
  Report Type: 
  Country: US (occurrence: US)
  Receive Date: 20120412
  Receipt Date: 20121218
  Transmission Date: 20130627
  Serious: No
  Sender: FDA-Public Use
  Company Number: US-ASTRAZENECA-2011SE57961

PATIENT
  Age: 56 Year
  Sex: Female

DRUGS (2)
  1. NEXIUM [Suspect]
     Route: 048
  2. CRESTOR [Suspect]
     Route: 048

REACTIONS (7)
  - Bipolar disorder [Unknown]
  - Aphagia [Unknown]
  - Gastric disorder [Unknown]
  - Nasopharyngitis [Unknown]
  - Pain [Unknown]
  - Nausea [Unknown]
  - Abdominal pain upper [Unknown]
